FAERS Safety Report 16076020 (Version 3)
Quarter: 2020Q3

REPORT INFORMATION
  Report Type: Other
  Country: IT (occurrence: IT)
  Receive Date: 20190315
  Receipt Date: 20200930
  Transmission Date: 20201102
  Serious: Yes (Death, Other)
  Sender: FDA-Public Use
  Company Number: IT-MACLEODS PHARMACEUTICALS US LTD-MAC2019020438

PATIENT

DRUGS (42)
  1. FUROSEMIDE. [Suspect]
     Active Substance: FUROSEMIDE
     Indication: RENAL IMPAIRMENT
     Dosage: UNK
     Route: 042
     Dates: start: 20021027, end: 20021106
  2. HALOPERIDOL. [Suspect]
     Active Substance: HALOPERIDOL
     Indication: AGITATION
     Dosage: UNK
     Route: 065
     Dates: start: 20021009, end: 20021104
  3. HALOPERIDOL. [Suspect]
     Active Substance: HALOPERIDOL
     Indication: HALLUCINATION
  4. ITRACONAZOLE. [Suspect]
     Active Substance: ITRACONAZOLE
     Indication: ORAL CANDIDIASIS
     Dosage: 100 MILLIGRAM
     Route: 065
     Dates: start: 20021009, end: 20021106
  5. FUROSEMIDE. [Suspect]
     Active Substance: FUROSEMIDE
     Indication: OLIGURIA
     Dosage: UNK
     Route: 048
     Dates: start: 20021004, end: 20021015
  6. CORTISONE ACETATE. [Suspect]
     Active Substance: CORTISONE ACETATE
     Indication: PRODUCT USED FOR UNKNOWN INDICATION
     Dosage: 50 MILLIGRAM, QD, 25 MG, BID
     Route: 065
     Dates: start: 20020927, end: 20021103
  7. CALCITRIOL. [Suspect]
     Active Substance: CALCITRIOL
     Indication: PRODUCT USED FOR UNKNOWN INDICATION
     Dosage: 0.5 MICROGRAM, QD, 0.5 MCG AT 08.00 HOURS
     Route: 065
     Dates: start: 20020927, end: 20021106
  8. CANRENOIC ACID [Suspect]
     Active Substance: CANRENOIC ACID
     Dosage: UNK
     Route: 065
     Dates: start: 20021027
  9. DIAZEPAM. [Suspect]
     Active Substance: DIAZEPAM
     Indication: HALLUCINATION
     Dosage: UNK
     Route: 065
     Dates: start: 20021009
  10. DIAZEMULS [Suspect]
     Active Substance: DIAZEPAM
     Indication: AGITATION
     Dosage: UNK
     Route: 065
     Dates: start: 20021009, end: 20021106
  11. CEFACLOR. [Suspect]
     Active Substance: CEFACLOR
     Indication: CYSTITIS
     Dosage: UNK
     Route: 065
  12. CANRENOIC ACID [Suspect]
     Active Substance: CANRENOIC ACID
     Indication: RENAL IMPAIRMENT
     Dosage: UNK
     Route: 048
     Dates: start: 20021004, end: 20021015
  13. GENTAMICIN. [Concomitant]
     Active Substance: GENTAMICIN
     Indication: PRODUCT USED FOR UNKNOWN INDICATION
     Dosage: UNK
     Route: 061
     Dates: start: 20021106, end: 20021110
  14. GLUCOSE [Concomitant]
     Active Substance: DEXTROSE
     Indication: PRODUCT USED FOR UNKNOWN INDICATION
     Dosage: UNK
     Route: 041
     Dates: start: 20021106, end: 20021110
  15. MAGNESIUM HYDROXIDE. [Concomitant]
     Active Substance: MAGNESIUM HYDROXIDE
     Indication: PRODUCT USED FOR UNKNOWN INDICATION
     Dosage: UNK
     Route: 065
     Dates: start: 20020927
  16. RANITIDINE. [Concomitant]
     Active Substance: RANITIDINE
     Indication: PRODUCT USED FOR UNKNOWN INDICATION
     Dosage: UNK
     Route: 042
     Dates: start: 20021103, end: 20021110
  17. CHLORPHENAMINE [Concomitant]
     Active Substance: CHLORPHENIRAMINE MALEATE
     Indication: PRODUCT USED FOR UNKNOWN INDICATION
     Dosage: UNK
     Route: 042
     Dates: start: 20021106, end: 20021110
  18. BETAMETHASONE. [Suspect]
     Active Substance: BETAMETHASONE
     Dosage: UNK
     Route: 065
     Dates: end: 20020927
  19. CALCIUM CARBONATE. [Suspect]
     Active Substance: CALCIUM CARBONATE
     Indication: PRODUCT USED FOR UNKNOWN INDICATION
     Dosage: 1 GRAM, QD
     Route: 065
     Dates: start: 20020927, end: 20020927
  20. CALCIUM GLUCONATE. [Suspect]
     Active Substance: CALCIUM GLUCONATE
     Indication: PRODUCT USED FOR UNKNOWN INDICATION
     Dosage: 1 GRAM
     Route: 065
     Dates: start: 20021009, end: 20021110
  21. INSULIN [Concomitant]
     Active Substance: INSULIN NOS
     Indication: PRODUCT USED FOR UNKNOWN INDICATION
     Dosage: UNK
     Route: 065
     Dates: start: 20021106, end: 20021110
  22. LEVOFLOXACIN 500 MG [Suspect]
     Active Substance: LEVOFLOXACIN
     Indication: PNEUMONIA
     Dosage: 500 MILLIGRAM, QD  (DAILY DOSE)
     Route: 048
     Dates: start: 20021004, end: 20021019
  23. PANTOPRAZOLE [Suspect]
     Active Substance: PANTOPRAZOLE
     Indication: PROPHYLAXIS
     Dosage: UNK
     Route: 048
     Dates: start: 20021009, end: 20021106
  24. OMEPRAZOLE 20 MG [Suspect]
     Active Substance: OMEPRAZOLE
     Indication: PRODUCT USED FOR UNKNOWN INDICATION
     Dosage: 20 MILLIGRAM, QD
     Route: 048
     Dates: start: 20020927, end: 20021103
  25. RABEPRAZOLE [Suspect]
     Active Substance: RABEPRAZOLE
     Indication: PRODUCT USED FOR UNKNOWN INDICATION
     Dosage: UNK
     Route: 065
     Dates: end: 20020927
  26. BETAMETHASONE. [Suspect]
     Active Substance: BETAMETHASONE
     Indication: PRODUCT USED FOR UNKNOWN INDICATION
     Dosage: 8 MILLIGRAM
     Route: 042
     Dates: start: 20021106, end: 20021110
  27. CEFACLOR. [Suspect]
     Active Substance: CEFACLOR
     Indication: ORAL CANDIDIASIS
     Dosage: UNK
     Route: 065
     Dates: end: 20020927
  28. NYSTATIN. [Suspect]
     Active Substance: NYSTATIN
     Indication: CYSTITIS
     Dosage: 12 MILLILITER, QD (DAILY DOSE)
     Route: 065
     Dates: start: 20020927, end: 20021009
  29. NYSTATIN. [Suspect]
     Active Substance: NYSTATIN
     Indication: CYSTITIS
  30. RIFAMYCIN [Concomitant]
     Active Substance: RIFAMYCIN
     Indication: PRODUCT USED FOR UNKNOWN INDICATION
     Dosage: UNK
     Route: 065
     Dates: start: 20021104, end: 20021106
  31. PIPERACILLIN. [Concomitant]
     Active Substance: PIPERACILLIN SODIUM
     Indication: PRODUCT USED FOR UNKNOWN INDICATION
     Dosage: UNK
     Route: 065
     Dates: start: 20021102, end: 20021104
  32. CEFACLOR. [Suspect]
     Active Substance: CEFACLOR
     Indication: CYSTITIS
  33. HYDROCORTISONE HYDROGEN SUCCINATE [Concomitant]
     Active Substance: HYDROCORTISONE HEMISUCCINATE ANHYDROUS
     Indication: PRODUCT USED FOR UNKNOWN INDICATION
     Dosage: 200 MILLIGRAM
     Route: 042
     Dates: start: 20021103, end: 20021106
  34. ALUMINIUM HYDROXIDE [Concomitant]
     Active Substance: ALUMINUM HYDROXIDE
     Indication: PRODUCT USED FOR UNKNOWN INDICATION
     Dosage: UNK
     Route: 048
     Dates: start: 20020927, end: 20021106
  35. DIAZEPAM. [Suspect]
     Active Substance: DIAZEPAM
     Indication: AGITATION
  36. CLAVUMOX [Suspect]
     Active Substance: AMOXICILLIN\CLAVULANATE POTASSIUM
     Indication: PNEUMONIA
     Dosage: 3600 MILLIGRAM, QD, 1200 MG, TID
     Route: 042
     Dates: start: 20021004, end: 20021019
  37. NYSTATIN. [Suspect]
     Active Substance: NYSTATIN
     Indication: ORAL CANDIDIASIS
     Dosage: UNK
     Route: 065
     Dates: start: 20020927, end: 20020927
  38. FLUDROCORTISONE [Suspect]
     Active Substance: FLUDROCORTISONE
     Indication: PRODUCT USED FOR UNKNOWN INDICATION
     Dosage: UNK
     Route: 065
     Dates: start: 20020927, end: 20021024
  39. METOCLOPRAMIDE. [Suspect]
     Active Substance: METOCLOPRAMIDE
     Indication: PRODUCT USED FOR UNKNOWN INDICATION
     Dosage: UNK
     Route: 065
     Dates: end: 20020927
  40. POTASSIUM CANRENOATE [Suspect]
     Active Substance: CANRENOATE POTASSIUM
     Indication: AGITATION
     Dosage: UNK
     Route: 048
     Dates: start: 20021004
  41. CALCIUM LACTATE GLUCONATE [Concomitant]
     Active Substance: CALCIUM LACTATE GLUCONATE
     Indication: PRODUCT USED FOR UNKNOWN INDICATION
     Dosage: UNK
     Route: 065
     Dates: start: 20020927
  42. POVIDONE?IODINE. [Concomitant]
     Active Substance: POVIDONE-IODINE
     Indication: PRODUCT USED FOR UNKNOWN INDICATION
     Dosage: UNK
     Route: 065
     Dates: start: 20021106, end: 20021110

REACTIONS (12)
  - Pyrexia [Fatal]
  - Skin infection [Fatal]
  - Toxic epidermal necrolysis [Fatal]
  - Skin lesion [Fatal]
  - Rash [Fatal]
  - Rash macular [Fatal]
  - Staphylococcal sepsis [Fatal]
  - Septic shock [Fatal]
  - Blister [Fatal]
  - Skin exfoliation [Fatal]
  - Mouth ulceration [Fatal]
  - Rash erythematous [Fatal]

NARRATIVE: CASE EVENT DATE: 200210
